FAERS Safety Report 8543612-6 (Version None)
Quarter: 2012Q3

REPORT INFORMATION
  Report Type: 
  Country: None (occurrence: None)
  Receive Date: 20120727
  Receipt Date: 20120719
  Transmission Date: 20120928
  Serious: Yes (Life-Threatening, Hospitalization)
  Sender: FDA-Public Use
  Company Number: US-ROXANE LABORATORIES, INC.-2012-RO-01566RO

PATIENT
  Age: 60 Year
  Sex: Female

DRUGS (3)
  1. AMLODIPINE [Suspect]
     Dosage: 20 MG
     Route: 048
  2. ASPIRIN [Suspect]
  3. METOPROLOL SUCCINATE [Suspect]

REACTIONS (5)
  - ILEUS PARALYTIC [None]
  - LACTIC ACIDOSIS [None]
  - RESPIRATORY FAILURE [None]
  - CARDIOGENIC SHOCK [None]
  - TOXICITY TO VARIOUS AGENTS [None]
